FAERS Safety Report 9567919 (Version 1)
Quarter: 2013Q3

REPORT INFORMATION
  Report Type: Spontaneous
  Country: US (occurrence: US)
  Receive Date: 20130930
  Receipt Date: 20130930
  Transmission Date: 20140515
  Serious: No
  Sender: FDA-Public Use
  Company Number: US-AMGEN-USASP2013017730

PATIENT
  Age: 11 Year
  Sex: Female
  Weight: 34.47 kg

DRUGS (5)
  1. ENBREL [Suspect]
     Indication: JUVENILE IDIOPATHIC ARTHRITIS
     Dosage: 25 MG, 2 TIMES/WK
     Route: 058
  2. METHOTREXATE [Concomitant]
     Dosage: 1 G, UNK
  3. FOLIC ACID [Concomitant]
     Dosage: 20 MG, UNK
  4. VITAMIN D                          /00107901/ [Concomitant]
     Dosage: 400 UNIT, UNK
  5. ONDANSETRON [Concomitant]
     Dosage: 32MG/50M

REACTIONS (1)
  - Gastroenteritis viral [Unknown]
